FAERS Safety Report 6823282-5 (Version None)
Quarter: 2010Q3

REPORT INFORMATION
  Report Type: 
  Country: None (occurrence: None)
  Receive Date: 20100708
  Receipt Date: 20100630
  Transmission Date: 20110219
  Serious: Yes (Other)
  Sender: FDA-Public Use
  Company Number: US-BAXTER-2010BH016295

PATIENT
  Age: 78 Year
  Sex: Female

DRUGS (11)
  1. ENDOXAN BAXTER [Suspect]
     Indication: BREAST CANCER
     Route: 042
     Dates: start: 20100524, end: 20100524
  2. ENDOXAN BAXTER [Suspect]
     Route: 042
     Dates: start: 20100503, end: 20100503
  3. TAXOTERE [Suspect]
     Indication: BREAST CANCER
     Route: 041
     Dates: start: 20100524, end: 20100524
  4. TAXOTERE [Suspect]
     Route: 041
     Dates: start: 20100503, end: 20100503
  5. CIPRO [Suspect]
     Indication: PROPHYLAXIS
     Route: 048
  6. CIPRO [Suspect]
     Route: 048
  7. DEXAMETHASONE [Concomitant]
     Indication: PREMEDICATION
     Route: 065
  8. ALOXI [Concomitant]
     Indication: PREMEDICATION
     Route: 065
  9. EMEND [Concomitant]
     Indication: PREMEDICATION
     Route: 065
  10. NEULASTA [Concomitant]
     Indication: PRODUCT USED FOR UNKNOWN INDICATION
     Route: 065
  11. LISINOPRIL [Concomitant]
     Indication: PRODUCT USED FOR UNKNOWN INDICATION
     Route: 065

REACTIONS (2)
  - BLOOD CREATININE INCREASED [None]
  - RENAL FAILURE ACUTE [None]
